FAERS Safety Report 8496517-3 (Version None)
Quarter: 2012Q3

REPORT INFORMATION
  Report Type: 
  Country: None (occurrence: None)
  Receive Date: 20120709
  Receipt Date: 20120630
  Transmission Date: 20120928
  Serious: Yes (Other)
  Sender: FDA-Public Use
  Company Number: US-JNJFOC-20120700953

PATIENT
  Sex: Female
  Weight: 59.88 kg

DRUGS (8)
  1. NEURONTIN [Concomitant]
     Indication: PAIN
     Route: 048
     Dates: start: 20100101
  2. METHOTREXATE [Concomitant]
     Indication: RHEUMATOID ARTHRITIS
     Route: 058
     Dates: start: 20110101
  3. REMICADE [Suspect]
     Indication: RHEUMATOID ARTHRITIS
     Route: 042
     Dates: start: 20120101
  4. FENTANYL [Concomitant]
     Indication: PAIN
     Route: 058
     Dates: start: 20100101
  5. NORCO [Concomitant]
     Indication: PAIN
     Dosage: EVERY 4-6 HOURS
     Route: 048
     Dates: start: 20110101
  6. FOLIC ACID [Concomitant]
     Dosage: EVERY 4-6 HOURS
     Route: 048
     Dates: start: 20110101
  7. VITAMIN D [Concomitant]
     Indication: NUTRITIONAL SUPPORT
     Dosage: EVERY 4-6 HOURS
     Route: 048
     Dates: start: 20110101
  8. D3-VICOTRAT [Concomitant]
     Indication: NUTRITIONAL SUPPORT
     Dosage: EVERY 4-6 HOURS
     Route: 065
     Dates: start: 20110101

REACTIONS (4)
  - EPISTAXIS [None]
  - DISCOMFORT [None]
  - EAR HAEMORRHAGE [None]
  - SYSTEMIC LUPUS ERYTHEMATOSUS [None]
